FAERS Safety Report 19622372 (Version 1)
Quarter: 2021Q3

REPORT INFORMATION
  Report Type: Spontaneous
  Country: US (occurrence: US)
  Receive Date: 20210728
  Receipt Date: 20210728
  Transmission Date: 20211014
  Serious: No
  Sender: FDA-Public Use
  Company Number: US-DENTSPLY PHARMACEUTICAL-2020SCDP000200

PATIENT
  Age: 52 Year
  Sex: Female

DRUGS (2)
  1. LIDOCAINE. [Suspect]
     Active Substance: LIDOCAINE
     Indication: PAIN IN EXTREMITY
     Dosage: UNK
  2. CAPSAICIN. [Concomitant]
     Active Substance: CAPSAICIN
     Indication: PAIN IN EXTREMITY
     Dosage: UNK

REACTIONS (1)
  - Drug ineffective [Unknown]
